FAERS Safety Report 12068736 (Version 2)
Quarter: 2016Q1

REPORT INFORMATION
  Report Type: Spontaneous
  Country: PL (occurrence: PL)
  Receive Date: 20160211
  Receipt Date: 20160229
  Transmission Date: 20160526
  Serious: Yes (Death, Other)
  Sender: FDA-Public Use
  Company Number: PL-SUN PHARMACEUTICAL INDUSTRIES LTD-2016RR-111188

PATIENT

DRUGS (2)
  1. GEMCITABINE [Suspect]
     Active Substance: GEMCITABINE\GEMCITABINE HYDROCHLORIDE
     Indication: PANCREATIC CARCINOMA
     Dosage: 1000 MG/M2, 1/WEEK, 26 COURSES
     Route: 042
  2. ERLOTINIB [Suspect]
     Active Substance: ERLOTINIB
     Indication: PANCREATIC CARCINOMA
     Dosage: 100 MG, DAILY, 26 COURSES
     Route: 065

REACTIONS (7)
  - Leukopenia [Unknown]
  - Oesophageal varices haemorrhage [Unknown]
  - Mesenteric vein thrombosis [Unknown]
  - Ascites [Unknown]
  - Portal hypertension [Unknown]
  - Neutropenia [Unknown]
  - Rash [Unknown]
